FAERS Safety Report 4680577-1 (Version None)
Quarter: 2005Q2

REPORT INFORMATION
  Report Type: 
  Country: None (occurrence: None)
  Receive Date: 20050531
  Receipt Date: 20050207
  Transmission Date: 20051028
  Serious: No
  Sender: FDA-Public Use
  Company Number: WAES 0412USA02764

PATIENT
  Sex: Male

DRUGS (2)
  1. ZETIA [Suspect]
     Indication: DYSLIPIDAEMIA
     Dosage: 10 MG/DAILY/PO
     Route: 048
     Dates: start: 20030501
  2. BEXTRA [Concomitant]

REACTIONS (2)
  - DRUG INEFFECTIVE [None]
  - NO ADVERSE EFFECT [None]
